FAERS Safety Report 5878543-3 (Version None)
Quarter: 2008Q3

REPORT INFORMATION
  Report Type: 
  Country: None (occurrence: None)
  Receive Date: 20080909
  Receipt Date: 20080519
  Transmission Date: 20090109
  Serious: Yes (Death)
  Sender: FDA-Public Use
  Company Number: 2008EU001117

PATIENT
  Age: 65 Year
  Sex: Male

DRUGS (2)
  1. PROGRAF [Suspect]
     Indication: LIVER TRANSPLANT
     Dosage: /D
  2. CORTICOSTEROIDS() [Suspect]
     Indication: LIVER TRANSPLANT
     Dosage: /D

REACTIONS (2)
  - GASTRIC MUCOSAL LESION [None]
  - KAPOSI'S SARCOMA [None]
